FAERS Safety Report 19310321 (Version 3)
Quarter: 2021Q4

REPORT INFORMATION
  Report Type: Other
  Country: FR (occurrence: None)
  Receive Date: 20210526
  Receipt Date: 20211117
  Transmission Date: 20220303
  Serious: Yes (Hospitalization)
  Sender: FDA-Public Use
  Company Number: FR-ROCHE-2415981

PATIENT
  Age: 78 Year
  Sex: Male
  Weight: 72 kg

DRUGS (18)
  1. ATEZOLIZUMAB [Suspect]
     Active Substance: ATEZOLIZUMAB
     Indication: Non-small cell lung cancer metastatic
     Dosage: ON 12 JUN 2019, 03 JUL 2019 AND 24 JUL 2019 RECEIVED SUBSEQUENT DOSE OF ATEZOLIZUMAB
     Route: 041
     Dates: start: 20190521
  2. METHIMAZOLE [Concomitant]
     Active Substance: METHIMAZOLE
     Dates: start: 201608
  3. PREDNISONE [Concomitant]
     Active Substance: PREDNISONE
     Dates: start: 2016, end: 20190408
  4. PREDNISONE [Concomitant]
     Active Substance: PREDNISONE
     Dates: start: 20190822
  5. PREDNISONE [Concomitant]
     Active Substance: PREDNISONE
     Dates: start: 20190408
  6. HYDROCORTISONE [Concomitant]
     Active Substance: HYDROCORTISONE
     Dates: start: 20190409
  7. PLAVIX [Concomitant]
     Active Substance: CLOPIDOGREL BISULFATE
     Dates: start: 2016
  8. TAHOR [Concomitant]
     Active Substance: ATORVASTATIN CALCIUM
     Indication: Prophylaxis
     Dates: start: 2016
  9. CARBIMAZOLE [Concomitant]
     Active Substance: CARBIMAZOLE
     Indication: Basedow^s disease
     Dates: start: 20160803
  10. OXAZEPAM [Concomitant]
     Active Substance: OXAZEPAM
     Indication: Prophylaxis
     Dates: start: 20190822
  11. SODIUM BICARBONATE [Concomitant]
     Active Substance: SODIUM BICARBONATE
     Indication: Prophylaxis
     Dates: start: 20190822
  12. DALTEPARIN SODIUM [Concomitant]
     Active Substance: DALTEPARIN SODIUM
     Dates: start: 20190822
  13. POLYETHYLENE GLYCOLS [Concomitant]
     Active Substance: POLYETHYLENE GLYCOLS
     Indication: Constipation
     Dates: start: 20190822
  14. FOLIC ACID [Concomitant]
     Active Substance: FOLIC ACID
     Indication: Malnutrition
     Dates: start: 20190822
  15. PREDNISOLONE SODIUM METAZOATE [Concomitant]
     Active Substance: PREDNISOLONE SODIUM METAZOATE
     Indication: Dyspnoea
     Dates: start: 20190822
  16. XARELTO [Concomitant]
     Active Substance: RIVAROXABAN
     Indication: Atrial fibrillation
     Dates: start: 20191219
  17. CARBOPLATIN [Concomitant]
     Active Substance: CARBOPLATIN
     Indication: Neoplasm malignant
  18. TAXOL [Concomitant]
     Active Substance: PACLITAXEL
     Indication: Neoplasm malignant

REACTIONS (5)
  - Hyperthyroidism [Unknown]
  - Neuralgia [Not Recovered/Not Resolved]
  - Peripheral arterial occlusive disease [Not Recovered/Not Resolved]
  - Arthritis [Not Recovered/Not Resolved]
  - Anaemia [Recovered/Resolved]

NARRATIVE: CASE EVENT DATE: 20190801
